FAERS Safety Report 8379934-1 (Version None)
Quarter: 2012Q2

REPORT INFORMATION
  Report Type: 
  Country: None (occurrence: None)
  Receive Date: 20120523
  Receipt Date: 20120521
  Transmission Date: 20120825
  Serious: Yes (Other)
  Sender: FDA-Public Use
  Company Number: US-PFIZER INC-2012122918

PATIENT
  Sex: Male

DRUGS (3)
  1. LODINE [Suspect]
     Indication: MUSCULOSKELETAL PAIN
     Dosage: UNK
  2. METHOCARBAMOL [Suspect]
     Indication: MUSCULOSKELETAL PAIN
     Dosage: UNK
  3. LYRICA [Suspect]
     Indication: MUSCULOSKELETAL PAIN
     Dosage: UNK

REACTIONS (2)
  - NECK INJURY [None]
  - JOINT INJURY [None]
